FAERS Safety Report 9263897 (Version 1)
Quarter: 2013Q1

REPORT INFORMATION
  Report Type: Spontaneous
  Country: US (occurrence: None)
  Receive Date: 20121212
  Receipt Date: 20121212
  Transmission Date: 20140127
  Serious: No
  Sender: FDA-Public Use
  Company Number: 1210USA007823

PATIENT
  Age: 60 Year
  Sex: Female

DRUGS (1)
  1. VICTRELIS [Suspect]
     Indication: HEPATITIS C

REACTIONS (8)
  - Influenza like illness [None]
  - Chills [None]
  - White blood cell count decreased [None]
  - Cough [None]
  - Visual impairment [None]
  - Confusional state [None]
  - Dizziness [None]
  - Gait disturbance [None]
